FAERS Safety Report 4588758-2 (Version None)
Quarter: 2005Q1

REPORT INFORMATION
  Report Type: 
  Country: None (occurrence: None)
  Receive Date: 20050222
  Receipt Date: 20050215
  Transmission Date: 20050727
  Serious: Yes (Hospitalization, Other)
  Sender: FDA-Public Use
  Company Number: US-JNJFOC-20040400229

PATIENT
  Sex: Female

DRUGS (5)
  1. LEVAQUIN [Suspect]
     Route: 049
  2. DIURIL [Concomitant]
  3. CELEXA [Concomitant]
  4. PROVIGIL [Concomitant]
  5. BEXTRA [Concomitant]

REACTIONS (6)
  - ABDOMINAL PAIN [None]
  - CEREBROVASCULAR ACCIDENT [None]
  - JAW DISORDER [None]
  - RETCHING [None]
  - SPEECH DISORDER [None]
  - TENDON RUPTURE [None]
